FAERS Safety Report 6298107-X (Version None)
Quarter: 2009Q3

REPORT INFORMATION
  Report Type: 
  Country: None (occurrence: None)
  Receive Date: 20090805
  Receipt Date: 20090728
  Transmission Date: 20100115
  Serious: Yes (Other)
  Sender: FDA-Public Use
  Company Number: PHHY2009BR31597

PATIENT
  Sex: Female

DRUGS (3)
  1. DIOVAN [Suspect]
     Dosage: 160 MG, UNK
  2. SEDILAX [Concomitant]
  3. SEXCEDINA [Concomitant]

REACTIONS (2)
  - ANGINA PECTORIS [None]
  - CHILLS [None]
